FAERS Safety Report 6098313-3 (Version None)
Quarter: 2009Q1

REPORT INFORMATION
  Report Type: 
  Country: None (occurrence: None)
  Receive Date: 20090302
  Receipt Date: 20090217
  Transmission Date: 20090719
  Serious: Yes (Other)
  Sender: FDA-Public Use
  Company Number: JP-PFIZER INC-2009172952

PATIENT

DRUGS (1)
  1. CORTRIL [Suspect]
     Dosage: 10 MG, 1X/DAY
     Route: 048
     Dates: start: 20090209

REACTIONS (2)
  - MANIA [None]
  - PSYCHIATRIC SYMPTOM [None]
